FAERS Safety Report 7933594-X (Version None)
Quarter: 2011Q4

REPORT INFORMATION
  Report Type: 
  Country: None (occurrence: None)
  Receive Date: 20111122
  Receipt Date: 20111111
  Transmission Date: 20120403
  Serious: Yes (Hospitalization)
  Sender: FDA-Public Use
  Company Number: GB-NOVOPROD-339290

PATIENT

DRUGS (1)
  1. VICTOZA [Suspect]
     Indication: DIABETES MELLITUS

REACTIONS (1)
  - PANCREATITIS [None]
